FAERS Safety Report 9716918 (Version 2)
Quarter: 2013Q4

REPORT INFORMATION
  Report Type: Spontaneous
  Country: US (occurrence: US)
  Receive Date: 20131127
  Receipt Date: 20131127
  Transmission Date: 20140711
  Serious: No
  Sender: FDA-Public Use
  Company Number: US-GILEAD-2009-0019938

PATIENT
  Age: 44 Year
  Sex: Female
  Weight: 58.06 kg

DRUGS (12)
  1. LETAIRIS [Suspect]
     Indication: PULMONARY ARTERIAL HYPERTENSION
     Route: 048
     Dates: start: 20081231
  2. REVATIO [Concomitant]
  3. TRAMADOL [Concomitant]
  4. CALCIUM [Concomitant]
  5. POTASSIUM [Concomitant]
  6. VESICARE [Concomitant]
  7. SANCTURA [Concomitant]
  8. CYCLOBENZAPRINE [Concomitant]
  9. ELMIRON [Concomitant]
  10. HYDROCODONE/IBUPROFEN [Concomitant]
  11. PREDNISONE [Concomitant]
  12. PRILOSEC [Concomitant]

REACTIONS (3)
  - Epistaxis [Unknown]
  - Dry mouth [Unknown]
  - Nasal congestion [Unknown]
